FAERS Safety Report 4789847-X (Version None)
Quarter: 2005Q4

REPORT INFORMATION
  Report Type: 
  Country: None (occurrence: None)
  Receive Date: 20051005
  Receipt Date: 20051005
  Transmission Date: 20060501
  Serious: Yes (Hospitalization)
  Sender: FDA-Public Use
  Company Number: None

PATIENT
  Age: 62 Year
  Sex: Male
  Weight: 114 kg

DRUGS (1)
  1. WARFARIN   5MG [Suspect]
     Indication: ATRIAL FIBRILLATION
     Dosage: 5MG  QD X 6D  PO
     Route: 048
     Dates: start: 20050829, end: 20050916

REACTIONS (2)
  - HAEMORRHAGE INTRACRANIAL [None]
  - HEADACHE [None]
